FAERS Safety Report 6443599-6 (Version None)
Quarter: 2009Q4

REPORT INFORMATION
  Report Type: 
  Country: None (occurrence: None)
  Receive Date: 20091117
  Receipt Date: 20091104
  Transmission Date: 20100525
  Serious: No
  Sender: FDA-Public Use
  Company Number: US-ASTRAZENECA-2009SE24626

PATIENT
  Sex: Female

DRUGS (2)
  1. SEROQUEL XR [Suspect]
     Route: 048
  2. CLOZAPINE [Concomitant]
     Dates: end: 20091001

REACTIONS (2)
  - AGRANULOCYTOSIS [None]
  - ANAEMIA [None]
